FAERS Safety Report 6976833-4 (Version None)
Quarter: 2010Q3

REPORT INFORMATION
  Report Type: 
  Country: None (occurrence: None)
  Receive Date: 20100910
  Receipt Date: 20100908
  Transmission Date: 20110219
  Serious: Yes (Other)
  Sender: FDA-Public Use
  Company Number: A0880291A

PATIENT
  Sex: Female

DRUGS (3)
  1. ADVAIR DISKUS 100/50 [Suspect]
     Indication: EMPHYSEMA
     Dosage: 1PUFF TWICE PER DAY
     Route: 055
  2. ADVAIR DISKUS 100/50 [Suspect]
     Dosage: 1PUFF TWICE PER DAY
     Route: 055
     Dates: start: 20100802
  3. NEBULIZER [Concomitant]

REACTIONS (5)
  - AGEUSIA [None]
  - CANDIDIASIS [None]
  - DRUG ADMINISTRATION ERROR [None]
  - DYSPNOEA [None]
  - VISUAL ACUITY REDUCED [None]
